FAERS Safety Report 4393801-X (Version None)
Quarter: 2004Q3

REPORT INFORMATION
  Report Type: 
  Country: None (occurrence: None)
  Receive Date: 20040706
  Receipt Date: 20020501
  Transmission Date: 20050211
  Serious: Yes (Hospitalization)
  Sender: FDA-Public Use
  Company Number: 2004-SW-00193SW

PATIENT
  Age: 76 Year
  Sex: Male

DRUGS (4)
  1. SIFROL TAB 0.35 MG (PRAMIPEXOLE DIHYDROCHLORIDE) [Suspect]
     Indication: PARKINSON'S DISEASE
     Dosage: 0.875 MG (0.35 MG, 1 + 0,5, +1)
     Dates: start: 20020501
  2. SINEMET DEPOT (SINEMET) [Concomitant]
  3. IMPUGAN (FUROSEMIDE) [Concomitant]
  4. K CL TAB [Concomitant]

REACTIONS (1)
  - PULMONARY FIBROSIS [None]
